FAERS Safety Report 12672010 (Version 1)
Quarter: 2016Q3

REPORT INFORMATION
  Report Type: Spontaneous
  Country: US (occurrence: None)
  Receive Date: 20160819
  Receipt Date: 20160819
  Transmission Date: 20161109
  Serious: No
  Sender: FDA-Public Use
  Company Number: None

PATIENT
  Age: 34 Year
  Sex: Female

DRUGS (1)
  1. TRAMADOL ER [Suspect]
     Active Substance: TRAMADOL HYDROCHLORIDE
     Indication: PAIN
     Route: 048
     Dates: start: 20160814, end: 20160818

REACTIONS (5)
  - Drug effect decreased [None]
  - Product substitution issue [None]
  - Pain [None]
  - Cold sweat [None]
  - Medication residue present [None]

NARRATIVE: CASE EVENT DATE: 20160818
